FAERS Safety Report 21687868 (Version 1)
Quarter: 2022Q4

REPORT INFORMATION
  Report Type: Spontaneous
  Country: FR (occurrence: FR)
  Receive Date: 20221206
  Receipt Date: 20221206
  Transmission Date: 20230113
  Serious: Yes (Hospitalization)
  Sender: FDA-Public Use
  Company Number: None

PATIENT
  Age: 59 Year
  Sex: Female

DRUGS (4)
  1. BISOPROLOL FUMARATE [Interacting]
     Active Substance: BISOPROLOL FUMARATE
     Indication: Cardiac failure
     Dosage: UNIT DOSE :  5 MG, FREQUENCY TIME : 1 DAY, THERAPY END DATE : ASKU
     Route: 065
     Dates: end: 20221028
  2. SPIRONOLACTONE [Interacting]
     Active Substance: SPIRONOLACTONE
     Indication: Cardiac failure
     Dosage: UNIT DOSE : 25 MG, FREQUENCY TIME : 1 DAY, DURATION : 14 DAYS
     Route: 065
     Dates: start: 20221014, end: 20221028
  3. PERINDOPRIL [Interacting]
     Active Substance: PERINDOPRIL
     Indication: Cardiac failure
     Dosage: UNIT DOSE : 1 DOSAGE FORMS, STRENGTH : 2.5 MG, FREQUENCY TIME : 1 DAY, DURATION : 14 DAYS
     Route: 065
     Dates: start: 20221014, end: 20221028
  4. FUROSEMIDE [Interacting]
     Active Substance: FUROSEMIDE
     Indication: Cardiac failure
     Dosage: SCORED TABLET, FREQUENCY TIME : 1 DAY, STRENGTH : 40 MG, UNIT DOSE : 1 DOSAGE FORMS, DURATION :   14
     Route: 065
     Dates: start: 20221014, end: 20221028

REACTIONS (2)
  - Hypotension [Recovered/Resolved]
  - Drug interaction [Recovered/Resolved]

NARRATIVE: CASE EVENT DATE: 20221028
